FAERS Safety Report 4288713-6 (Version None)
Quarter: 2004Q1

REPORT INFORMATION
  Report Type: 
  Country: None (occurrence: None)
  Receive Date: 20040130
  Receipt Date: 20031002
  Transmission Date: 20041129
  Serious: Yes (Hospitalization, Disabling)
  Sender: FDA-Public Use
  Company Number: WAES0310USA00388

PATIENT
  Age: 48 Year
  Sex: Male
  Weight: 124.7392 kg

DRUGS (5)
  1. EMEND [Suspect]
     Indication: CHEMOTHERAPY
     Dosage: PO
     Route: 048
     Dates: start: 20030101
  2. EMEND [Suspect]
     Indication: PROPHYLAXIS
     Dosage: PO
     Route: 048
     Dates: start: 20030101
  3. TAXOTERE [Concomitant]
  4. ZOFRAN [Concomitant]
  5. CISPLATIN [Concomitant]

REACTIONS (2)
  - NAUSEA [None]
  - VOMITING [None]
